FAERS Safety Report 7274933-5 (Version None)
Quarter: 2011Q1

REPORT INFORMATION
  Report Type: 
  Country: None (occurrence: None)
  Receive Date: 20110204
  Receipt Date: 20110126
  Transmission Date: 20110831
  Serious: Yes (Other)
  Sender: FDA-Public Use
  Company Number: US-ROCHE-622194

PATIENT
  Sex: Female

DRUGS (3)
  1. ORTHO TRI-CYCLEN [Concomitant]
  2. ACCUTANE [Suspect]
     Route: 065
     Dates: start: 20010911, end: 20020201
  3. SOTRET [Suspect]
     Route: 048
     Dates: start: 20070501, end: 20070901

REACTIONS (51)
  - CROHN'S DISEASE [None]
  - GASTROOESOPHAGEAL REFLUX DISEASE [None]
  - BLOOD CHOLESTEROL INCREASED [None]
  - STRESS [None]
  - AFFECT LABILITY [None]
  - CYSTITIS INTERSTITIAL [None]
  - HERPES VIRUS INFECTION [None]
  - COLITIS ULCERATIVE [None]
  - ABDOMINAL ADHESIONS [None]
  - LIP BLISTER [None]
  - RESTLESSNESS [None]
  - MALABSORPTION [None]
  - DIZZINESS [None]
  - MENORRHAGIA [None]
  - ENDOMETRIOSIS [None]
  - RASH PAPULAR [None]
  - ANXIETY [None]
  - INSOMNIA [None]
  - GASTRITIS [None]
  - CONSTIPATION [None]
  - LIP DRY [None]
  - DRY SKIN [None]
  - FATIGUE [None]
  - ASTHENIA [None]
  - HYPOTHYROIDISM [None]
  - DEPRESSION [None]
  - SLEEP APNOEA SYNDROME [None]
  - DIVERTICULITIS [None]
  - APHAGIA [None]
  - DYSPAREUNIA [None]
  - INFLAMMATORY BOWEL DISEASE [None]
  - XEROSIS [None]
  - WEIGHT DECREASED [None]
  - DYSMENORRHOEA [None]
  - PROCTITIS [None]
  - HAEMOGLOBIN DECREASED [None]
  - HAEMATOCRIT DECREASED [None]
  - RECTAL HAEMORRHAGE [None]
  - DECREASED APPETITE [None]
  - IRON DEFICIENCY ANAEMIA [None]
  - RED BLOOD CELL SEDIMENTATION RATE INCREASED [None]
  - PANIC DISORDER [None]
  - PELVIC ADHESIONS [None]
  - URINARY TRACT INFECTION [None]
  - RED BLOOD CELL COUNT DECREASED [None]
  - INCREASED APPETITE [None]
  - IRRITABILITY [None]
  - SLEEP DISORDER [None]
  - HAEMORRHOIDS [None]
  - VESICOURETERIC REFLUX [None]
  - STREPTOCOCCAL URINARY TRACT INFECTION [None]
